FAERS Safety Report 7796106-X (Version None)
Quarter: 2011Q4

REPORT INFORMATION
  Report Type: 
  Country: None (occurrence: None)
  Receive Date: 20111004
  Receipt Date: 20110921
  Transmission Date: 20120403
  Serious: Yes (Hospitalization)
  Sender: FDA-Public Use
  Company Number: US-MYLANLABS-2011S1020120

PATIENT
  Age: 66 Year
  Sex: Female

DRUGS (4)
  1. PREDNISONE [Concomitant]
     Indication: IMMUNOSUPPRESSION
     Route: 065
  2. FEBUXOSTAT [Interacting]
     Indication: GOUT
     Dosage: 40MG DAILY
     Route: 065
  3. CYCLOSPORINE [Concomitant]
     Indication: IMMUNOSUPPRESSION
     Route: 065
  4. AZATHIOPRINE [Suspect]
     Indication: IMMUNOSUPPRESSION
     Route: 065

REACTIONS (7)
  - DIARRHOEA [None]
  - FATIGUE [None]
  - DRUG INTERACTION [None]
  - PANCYTOPENIA [None]
  - NAUSEA [None]
  - MALAISE [None]
  - VOMITING [None]
